FAERS Safety Report 23246796 (Version 1)
Quarter: 2023Q4

REPORT INFORMATION
  Report Type: Spontaneous
  Country: US (occurrence: None)
  Receive Date: 20231129
  Receipt Date: 20231129
  Transmission Date: 20240110
  Serious: Yes (Disabling, Other)
  Sender: FDA-Public Use
  Company Number: None

PATIENT
  Age: 34 Year
  Sex: Female
  Weight: 72.57 kg

DRUGS (1)
  1. SERTRALINE [Suspect]
     Active Substance: SERTRALINE HYDROCHLORIDE
     Indication: Depression
     Dosage: FREQUENCY : DAILY;?
     Route: 048
     Dates: start: 20110101, end: 20130101

REACTIONS (5)
  - Feeling abnormal [None]
  - Memory impairment [None]
  - Depressed mood [None]
  - Intrusive thoughts [None]
  - Depression [None]

NARRATIVE: CASE EVENT DATE: 20200101
